FAERS Safety Report 5145850-1 (Version None)
Quarter: 2006Q4

REPORT INFORMATION
  Report Type: 
  Country: None (occurrence: None)
  Receive Date: 20061101
  Receipt Date: 20061023
  Transmission Date: 20070319
  Serious: Yes (Other)
  Sender: FDA-Public Use
  Company Number: C-06-0060

PATIENT
  Age: 22 Month
  Sex: Female

DRUGS (1)
  1. FERROUS SUL TAB [Suspect]
     Indication: IRON DEFICIENCY ANAEMIA
     Dosage: 1.5ML, ORALLY/DAY
     Route: 048
     Dates: start: 20061019, end: 20061020

REACTIONS (2)
  - LETHARGY [None]
  - SOMNOLENCE [None]
